FAERS Safety Report 4721080-X (Version None)
Quarter: 2005Q3

REPORT INFORMATION
  Report Type: 
  Country: None (occurrence: None)
  Receive Date: 20050719
  Receipt Date: 20041103
  Transmission Date: 20060218
  Serious: Yes (Hospitalization)
  Sender: FDA-Public Use
  Company Number: 2004090934

PATIENT
  Sex: Female

DRUGS (7)
  1. CELEBREX [Suspect]
     Indication: ILL-DEFINED DISORDER
  2. MORPHINE SULFATE (MORPHINE SULFATE) [Concomitant]
  3. PROPACET 100 [Concomitant]
  4. CODEINE SUL TAB [Concomitant]
  5. ACETAMINOPHEN [Concomitant]
  6. NSAID'S (NSAID'S) [Concomitant]
  7. MORPHINE [Concomitant]

REACTIONS (1)
  - HYPERTENSION [None]
